FAERS Safety Report 6457316-7 (Version None)
Quarter: 2009Q4

REPORT INFORMATION
  Report Type: 
  Country: None (occurrence: None)
  Receive Date: 20091125
  Receipt Date: 20091116
  Transmission Date: 20100525
  Serious: Yes (Life-Threatening)
  Sender: FDA-Public Use
  Company Number: GXKR2009NO12503

PATIENT
  Sex: Male

DRUGS (6)
  1. METFORMIN (NGX) [Suspect]
     Indication: DIABETES MELLITUS
     Dosage: 1700 MG + 850 MG + 850 MG DAILY
     Route: 048
  2. RENITEC COMP. [Interacting]
     Route: 048
  3. BRUFEN - SLOW RELEASE [Interacting]
     Dosage: 1-3 X 800 MG
     Route: 048
  4. AMARYL [Concomitant]
     Route: 048
  5. PARALGIN FORTE [Concomitant]
     Dosage: 1-3 X TABLET
     Route: 048
  6. SIMVASTATIN [Concomitant]
     Route: 048

REACTIONS (5)
  - ACUTE RESPIRATORY FAILURE [None]
  - DRUG INTERACTION [None]
  - LACTIC ACIDOSIS [None]
  - RENAL FAILURE ACUTE [None]
  - SHOCK [None]
